FAERS Safety Report 17002239 (Version 2)
Quarter: 2019Q4

REPORT INFORMATION
  Report Type: Spontaneous
  Country: EG (occurrence: EG)
  Receive Date: 20191106
  Receipt Date: 20191122
  Transmission Date: 20200122
  Serious: Yes (Hospitalization, Other)
  Sender: FDA-Public Use
  Company Number: EG-NOVOPROD-693467

PATIENT
  Age: 65 Year
  Sex: Male
  Weight: 75 kg

DRUGS (13)
  1. NOVONORM [Concomitant]
     Active Substance: REPAGLINIDE
     Indication: DIABETES MELLITUS
     Dosage: 1 TABLET AT LUNCH, STARTED 7 YEARS AGO
     Route: 048
  2. MIXTARD 30 HM PENFILL [Suspect]
     Active Substance: INSULIN HUMAN
     Dosage: ADDITIONAL DOSE 15 IU (10 IU+5 IU)
     Route: 058
     Dates: start: 20190221
  3. ASPOCID [Concomitant]
     Active Substance: ASPIRIN
     Indication: CARDIAC DISORDER
     Dosage: 2  TABLETS AFTER LUNCH , SINCE 7-8 YEARS
     Route: 048
  4. TRITACE COMP [Concomitant]
     Indication: HYPERTENSION
     Dosage: 1 TABLET AT MORNING , STARTED 7 YEARS AGO
     Route: 048
  5. TRITACE COMP [Concomitant]
     Indication: CARDIAC DISORDER
  6. THIOTACID [Concomitant]
     Active Substance: .ALPHA.-LIPOIC ACID
     Indication: NEURITIS
     Dosage: 1 TABLET 2 HRS AFTER LUNCH , STARTED 5 YEARS AGO
     Route: 048
  7. GLIMET [REPAGLINIDE] [Concomitant]
     Indication: DIABETES MELLITUS
     Dosage: 1 TABLET AFTER LUNCH, STARTED 7 YEARS AGO
     Route: 048
  8. DIMETROL [DILOXANIDE FUROATE;DROTAVERINE HYDROCHLORIDE;METRONIDAZOLE] [Concomitant]
     Indication: CARDIAC DISORDER
  9. CONVENTIN [Concomitant]
     Indication: NEURITIS
     Dosage: 1 TABLET AT NIGHT , STARTED 2 MONTHS AGO
     Route: 048
  10. TEGRETOL [Concomitant]
     Active Substance: CARBAMAZEPINE
     Indication: NEURITIS
     Dosage: 1 TABLET AT NIGHT, STARTED 5 YEARS AGO
     Route: 048
  11. MIXTARD 30 HM PENFILL [Suspect]
     Active Substance: INSULIN HUMAN
     Indication: DIABETES MELLITUS
     Dosage: 75 IU, QD (50 U MORNING , 25 U NIGHT)
     Route: 058
  12. DIMETROL [DILOXANIDE FUROATE;DROTAVERINE HYDROCHLORIDE;METRONIDAZOLE] [Concomitant]
     Indication: HYPERTENSION
     Dosage: 1 DAILY  TABLET, STARTED 7 YEARS AGO
     Route: 048
  13. CEREBROMAP [Concomitant]
     Indication: NEURITIS
     Dosage: 1 TABLET PER EACH MEAL, STARTED SINCE 1 MONTH
     Route: 048

REACTIONS (3)
  - Tendon injury [Not Recovered/Not Resolved]
  - Diabetic retinopathy [Unknown]
  - Cataract [Not Recovered/Not Resolved]

NARRATIVE: CASE EVENT DATE: 20180328
